FAERS Safety Report 8506406-3 (Version None)
Quarter: 2012Q3

REPORT INFORMATION
  Report Type: 
  Country: None (occurrence: None)
  Receive Date: 20120712
  Receipt Date: 20120709
  Transmission Date: 20120928
  Serious: Yes (Other)
  Sender: FDA-Public Use
  Company Number: US-ROCHE-787464

PATIENT
  Sex: Female

DRUGS (3)
  1. DIFFERIN [Concomitant]
  2. ACCUTANE [Suspect]
     Indication: PRODUCT USED FOR UNKNOWN INDICATION
     Route: 065
  3. MINOCYCLINE HCL [Concomitant]

REACTIONS (3)
  - ENTEROCOLITIS [None]
  - IRRITABLE BOWEL SYNDROME [None]
  - INJURY [None]
